FAERS Safety Report 20410103 (Version 3)
Quarter: 2022Q1

REPORT INFORMATION
  Report Type: Report from Study
  Country: US (occurrence: US)
  Receive Date: 20220201
  Receipt Date: 20220328
  Transmission Date: 20220423
  Serious: No
  Sender: FDA-Public Use
  Company Number: US-KYOWAKIRIN-2022BKK000652

PATIENT

DRUGS (2)
  1. GRANISETRON [Suspect]
     Active Substance: GRANISETRON
     Indication: Nausea
     Dosage: UNK
     Route: 061
     Dates: start: 20211117
  2. GRANISETRON [Suspect]
     Active Substance: GRANISETRON
     Dosage: UNK
     Route: 061

REACTIONS (1)
  - Skin irritation [Not Recovered/Not Resolved]

NARRATIVE: CASE EVENT DATE: 20220118
